FAERS Safety Report 8224550-5 (Version None)
Quarter: 2012Q1

REPORT INFORMATION
  Report Type: 
  Country: None (occurrence: None)
  Receive Date: 20120321
  Receipt Date: 20120313
  Transmission Date: 20120608
  Serious: Yes (Death, Other)
  Sender: FDA-Public Use
  Company Number: CR-PFIZER INC-2012070825

PATIENT
  Age: 66 Year
  Sex: Male

DRUGS (1)
  1. PANTOPRAZOLE [Suspect]
     Indication: GASTRIC CANCER

REACTIONS (4)
  - DEATH [None]
  - BONE CANCER METASTATIC [None]
  - METASTASIS [None]
  - OFF LABEL USE [None]
